FAERS Safety Report 8421339-9 (Version None)
Quarter: 2012Q2

REPORT INFORMATION
  Report Type: 
  Country: None (occurrence: None)
  Receive Date: 20120608
  Receipt Date: 20120604
  Transmission Date: 20120825
  Serious: Yes (Other)
  Sender: FDA-Public Use
  Company Number: PHEH2012US011340

PATIENT

DRUGS (1)
  1. CLOZARIL [Suspect]

REACTIONS (1)
  - THYROID CANCER [None]
